FAERS Safety Report 10740115 (Version 2)
Quarter: 2015Q1

REPORT INFORMATION
  Report Type: Spontaneous
  Country: GB (occurrence: GB)
  Receive Date: 20150127
  Receipt Date: 20150321
  Transmission Date: 20150721
  Serious: Yes (Other)
  Sender: FDA-Public Use
  Company Number: GB-DRREDDYS-GER/UKI/15/0045585

PATIENT
  Age: 15 Year
  Sex: Female

DRUGS (1)
  1. PROZEP CHEMIDEX PHARMA [Suspect]
     Active Substance: FLUOXETINE HYDROCHLORIDE
     Indication: PRODUCT USED FOR UNKNOWN INDICATION

REACTIONS (3)
  - Pressure of speech [Unknown]
  - Dyskinesia [Unknown]
  - Gastric dilatation [Unknown]

NARRATIVE: CASE EVENT DATE: 20150115
